FAERS Safety Report 4370009-5 (Version None)
Quarter: 2004Q2

REPORT INFORMATION
  Report Type: 
  Country: None (occurrence: None)
  Receive Date: 20040603
  Receipt Date: 20040521
  Transmission Date: 20050107
  Serious: Yes (Other)
  Sender: FDA-Public Use
  Company Number: CN-GLAXOSMITHKLINE-B0334400A

PATIENT
  Age: 50 Year
  Sex: Male

DRUGS (2)
  1. HEPTODIN [Suspect]
     Route: 048
     Dates: start: 20021101
  2. CHINESE HERBAL MEDICINE [Concomitant]

REACTIONS (3)
  - HBV DNA INCREASED [None]
  - PLATELET COUNT DECREASED [None]
  - WHITE BLOOD CELL COUNT DECREASED [None]
